FAERS Safety Report 5095949-3 (Version None)
Quarter: 2006Q3

REPORT INFORMATION
  Report Type: 
  Country: None (occurrence: None)
  Receive Date: 20060905
  Receipt Date: 20060821
  Transmission Date: 20061208
  Serious: Yes (Hospitalization)
  Sender: FDA-Public Use
  Company Number: JP-BRACCO-BRO-010408

PATIENT
  Sex: Female
  Weight: 35 kg

DRUGS (8)
  1. IOPAMIRON [Suspect]
     Route: 013
     Dates: start: 20060811, end: 20060811
  2. IOPAMIRON [Suspect]
     Indication: HAEMOPTYSIS
     Route: 013
     Dates: start: 20060811, end: 20060811
  3. IOPAMIRON [Suspect]
     Indication: THERAPEUTIC EMBOLISATION
     Route: 013
     Dates: start: 20060811, end: 20060811
  4. MAXIPIME [Concomitant]
     Route: 042
     Dates: start: 20060811, end: 20060814
  5. ATROPINA SULFATO [Concomitant]
     Route: 030
     Dates: start: 20060811, end: 20060811
  6. PENTAGIN [Concomitant]
     Route: 030
     Dates: start: 20060811, end: 20060811
  7. TRANSAMIN [Concomitant]
     Dosage: 1 AMP
     Route: 030
     Dates: start: 20060811
  8. ADONA [Concomitant]
     Dosage: 1 AMP
     Route: 030
     Dates: start: 20060811

REACTIONS (2)
  - BRAIN SCAN ABNORMAL [None]
  - CONVULSION [None]
